FAERS Safety Report 23694746 (Version 1)
Quarter: 2024Q2

REPORT INFORMATION
  Report Type: Spontaneous
  Country: CN (occurrence: CN)
  Receive Date: 20240402
  Receipt Date: 20240402
  Transmission Date: 20240716
  Serious: Yes (Death)
  Sender: FDA-Public Use
  Company Number: CN-ALKEM LABORATORIES LIMITED-CN-ALKEM-2023-06492

PATIENT
  Age: 70 Year
  Sex: Female

DRUGS (2)
  1. COLCHICINE [Suspect]
     Active Substance: COLCHICINE
     Indication: Gout
     Dosage: 2 DOSAGE FORM, QD (PER DAY) (TABLETS)
     Route: 048
  2. COLCHICINE [Suspect]
     Active Substance: COLCHICINE
     Dosage: 10 DOSAGE FORM, ONCE (TABLETS)
     Route: 048

REACTIONS (6)
  - Drug level above therapeutic [Fatal]
  - Intentional overdose [Fatal]
  - Toxicity to various agents [Fatal]
  - Abdominal pain [Unknown]
  - Diarrhoea [Unknown]
  - Vomiting [Unknown]
